FAERS Safety Report 18623903 (Version 1)
Quarter: 2020Q4

REPORT INFORMATION
  Report Type: Other
  Country: US (occurrence: US)
  Receive Date: 20201216
  Receipt Date: 20201216
  Transmission Date: 20210114
  Serious: Yes (Death)
  Sender: FDA-Public Use
  Company Number: US-REGULIS CONSULTING LTD-2103054

PATIENT
  Age: 35 Year
  Sex: Male

DRUGS (2)
  1. SODIUM NITRITE [Suspect]
     Active Substance: SODIUM NITRITE
     Route: 048
  2. METHYLENE BLUE. [Suspect]
     Active Substance: METHYLENE BLUE
     Indication: METHAEMOGLOBINAEMIA
     Route: 065

REACTIONS (2)
  - Injection site extravasation [Unknown]
  - Drug ineffective [Fatal]
